FAERS Safety Report 18361058 (Version 2)
Quarter: 2022Q2

REPORT INFORMATION
  Report Type: Spontaneous
  Country: BR (occurrence: BR)
  Receive Date: 20201008
  Receipt Date: 20220628
  Transmission Date: 20220721
  Serious: Yes (Other)
  Sender: FDA-Public Use
  Company Number: BR-GLAXOSMITHKLINE-BR2020AMR197127

PATIENT

DRUGS (5)
  1. DUTASTERIDE\TAMSULOSIN [Suspect]
     Active Substance: DUTASTERIDE\TAMSULOSIN
     Indication: Benign prostatic hyperplasia
     Dosage: 1 DF, QD
  2. FUROSEMIDE [Suspect]
     Active Substance: FUROSEMIDE
     Indication: Diuretic therapy
     Dosage: 40 MG
  3. SPIRONOLACTONE [Suspect]
     Active Substance: SPIRONOLACTONE
     Indication: Diuretic therapy
     Dosage: 25 MG
  4. LOSARTAN [Suspect]
     Active Substance: LOSARTAN
     Indication: Dysuria
     Dosage: UNK UNK, BID
  5. METOPROLOL SUCCINATE [Suspect]
     Active Substance: METOPROLOL SUCCINATE
     Indication: Cardiac disorder
     Dosage: UNK

REACTIONS (10)
  - Urinary retention [Unknown]
  - Nephrolithiasis [Unknown]
  - Prostatic disorder [Unknown]
  - Malaise [Unknown]
  - Libido decreased [Unknown]
  - Ejaculation disorder [Unknown]
  - Dysuria [Unknown]
  - Drug withdrawal syndrome [Unknown]
  - Drug ineffective [Unknown]
  - Product complaint [Unknown]
